FAERS Safety Report 26025447 (Version 1)
Quarter: 2025Q4

REPORT INFORMATION
  Report Type: Spontaneous
  Country: CN (occurrence: CN)
  Receive Date: 20251111
  Receipt Date: 20251111
  Transmission Date: 20260117
  Serious: Yes (Other)
  Sender: ACCORD
  Company Number: None

PATIENT
  Age: 58 Year
  Sex: Female
  Weight: 54.5 kg

DRUGS (2)
  1. TRASTUZUMAB [Suspect]
     Active Substance: TRASTUZUMAB
     Indication: Invasive ductal breast carcinoma
     Dosage: 432 MILLIGRAM, QD, IV DRIP, STRENGTH: 150 MG
     Route: 042
     Dates: start: 20251015, end: 20251015
  2. DOCETAXEL [Suspect]
     Active Substance: DOCETAXEL
     Indication: Invasive ductal breast carcinoma
     Dosage: 110 MILLIGRAM, QD, IV DRIP
     Route: 042
     Dates: start: 20251015, end: 20251015

REACTIONS (1)
  - Myelosuppression [Recovering/Resolving]

NARRATIVE: CASE EVENT DATE: 20251022
